FAERS Safety Report 24583307 (Version 1)
Quarter: 2024Q4

REPORT INFORMATION
  Report Type: Spontaneous
  Country: US (occurrence: US)
  Receive Date: 20241106
  Receipt Date: 20241106
  Transmission Date: 20250114
  Serious: No
  Sender: TRIS PHARMA, INC.
  Company Number: US-TRIS PHARMA, INC.-24US011719

PATIENT

DRUGS (1)
  1. DYANAVEL XR [Suspect]
     Active Substance: AMPHETAMINE
     Indication: Attention deficit hyperactivity disorder
     Dosage: 15 MILLIGRAM, QD, STARTED ABOUT 3 MONTHS AGO
     Route: 048

REACTIONS (3)
  - Panic attack [Unknown]
  - Off label use [Unknown]
  - Intentional product use issue [Unknown]
